FAERS Safety Report 9228393 (Version 1)
Quarter: 2013Q2

REPORT INFORMATION
  Report Type: Report from Study
  Country: FR (occurrence: FR)
  Receive Date: 20130412
  Receipt Date: 20130412
  Transmission Date: 20140414
  Serious: Yes (Hospitalization)
  Sender: FDA-Public Use
  Company Number: FR-ROCHE-1212096

PATIENT
  Age: 74 Year
  Sex: Female
  Weight: 60 kg

DRUGS (3)
  1. VALIUM [Concomitant]
     Route: 048
  2. INEXIUM [Concomitant]
     Indication: ABDOMINAL PAIN UPPER
     Route: 048
  3. TENECTEPLASE [Suspect]
     Indication: PULMONARY EMBOLISM
     Route: 040

REACTIONS (1)
  - Haemoglobin decreased [Recovered/Resolved]
